FAERS Safety Report 18546808 (Version 1)
Quarter: 2020Q4

REPORT INFORMATION
  Report Type: Report from Study
  Country: BR (occurrence: BR)
  Receive Date: 20201125
  Receipt Date: 20201125
  Transmission Date: 20210114
  Serious: Yes (Hospitalization)
  Sender: FDA-Public Use
  Company Number: BR-JNJFOC-20201137133

PATIENT
  Age: 9 Year
  Sex: Female
  Weight: 28 kg

DRUGS (2)
  1. ENTOCORT [Concomitant]
     Active Substance: BUDESONIDE
  2. REMICADE [Suspect]
     Active Substance: INFLIXIMAB
     Indication: CROHN^S DISEASE
     Route: 042
     Dates: start: 20201023

REACTIONS (3)
  - Infusion related reaction [Unknown]
  - Crohn^s disease [Unknown]
  - Pyrexia [Unknown]

NARRATIVE: CASE EVENT DATE: 20201106
